FAERS Safety Report 5403175-0 (Version None)
Quarter: 2007Q3

REPORT INFORMATION
  Report Type: 
  Country: None (occurrence: None)
  Receive Date: 20070801
  Receipt Date: 20070712
  Transmission Date: 20080115
  Serious: Yes (Hospitalization, Disabling, Other)
  Sender: FDA-Public Use
  Company Number: US-PFIZER INC-2006119933

PATIENT
  Sex: Female
  Weight: 63.5 kg

DRUGS (9)
  1. BEXTRA [Suspect]
     Indication: PAIN
     Dates: start: 20020919, end: 20040505
  2. VIOXX [Suspect]
     Indication: ARTHRALGIA
     Dosage: FREQ:FREQUENCY: 1-2X
     Route: 048
     Dates: start: 19991228, end: 20040829
  3. IBUPROFEN [Concomitant]
     Dates: start: 19800101
  4. AMERGE [Concomitant]
     Dates: start: 20020102, end: 20040521
  5. INDERAL [Concomitant]
     Dates: start: 19800101
  6. HYDROCODONE BITARTRATE [Concomitant]
     Dates: start: 20020916, end: 20031211
  7. BEXTRA [Concomitant]
     Dates: start: 20020919, end: 20040505
  8. NAPROXEN [Concomitant]
  9. ASPIRIN [Concomitant]

REACTIONS (3)
  - CENTRAL PAIN SYNDROME [None]
  - CEREBROVASCULAR ACCIDENT [None]
  - DEPRESSION [None]
